FAERS Safety Report 13003355 (Version 1)
Quarter: 2016Q4

REPORT INFORMATION
  Report Type: Spontaneous
  Country: US (occurrence: US)
  Receive Date: 20161206
  Receipt Date: 20161206
  Transmission Date: 20170207
  Serious: Yes (Hospitalization)
  Sender: FDA-Public Use
  Company Number: US-BAYER-2016-229899

PATIENT
  Age: 19 Year
  Sex: Female
  Weight: 58.97 kg

DRUGS (9)
  1. TYLENOL PM [Suspect]
     Active Substance: ACETAMINOPHEN\DIPHENHYDRAMINE
     Indication: BACK PAIN
     Dosage: UNK
     Dates: start: 20161016, end: 20161016
  2. TYLENOL PM [Suspect]
     Active Substance: ACETAMINOPHEN\DIPHENHYDRAMINE
     Indication: PYREXIA
  3. BAYER ASPIRIN [Suspect]
     Active Substance: ASPIRIN
     Indication: HEADACHE
     Dosage: 2 DF, UNK
     Dates: start: 20161016, end: 20161016
  4. ADVIL [Suspect]
     Active Substance: IBUPROFEN
     Indication: BACK PAIN
     Dosage: 200 MG, BID
     Route: 048
     Dates: start: 20161022, end: 20161101
  5. ADVIL [Suspect]
     Active Substance: IBUPROFEN
     Indication: PYREXIA
  6. BAYER ASPIRIN [Suspect]
     Active Substance: ASPIRIN
     Indication: PYREXIA
  7. BAYER ASPIRIN [Suspect]
     Active Substance: ASPIRIN
     Indication: BACK PAIN
     Dosage: UNK
  8. TYLENOL PM [Suspect]
     Active Substance: ACETAMINOPHEN\DIPHENHYDRAMINE
     Indication: HEADACHE
  9. ADVIL [Suspect]
     Active Substance: IBUPROFEN
     Indication: HEADACHE

REACTIONS (8)
  - Haematochezia [Recovered/Resolved]
  - Nausea [Recovered/Resolved]
  - Malaise [Recovered/Resolved]
  - Headache [Recovered/Resolved]
  - Drug ineffective [None]
  - Cardiac disorder [None]
  - Renal disorder [None]
  - Dyspnoea [Recovered/Resolved]

NARRATIVE: CASE EVENT DATE: 20161016
